FAERS Safety Report 18958175 (Version 2)
Quarter: 2021Q1

REPORT INFORMATION
  Report Type: Spontaneous
  Country: CN (occurrence: CN)
  Receive Date: 20210302
  Receipt Date: 20210330
  Transmission Date: 20210420
  Serious: Yes (Hospitalization)
  Sender: FDA-Public Use
  Company Number: CN-PFIZER INC-2021202860

PATIENT
  Age: 88 Year
  Sex: Female

DRUGS (2)
  1. MEPEM [Suspect]
     Active Substance: MEROPENEM
     Indication: INFECTION
     Dosage: 0.5 G, 3X/DAY
     Route: 041
     Dates: start: 20210129, end: 20210209
  2. SODIUM CHLORIDE. [Concomitant]
     Active Substance: SODIUM CHLORIDE
     Indication: VEHICLE SOLUTION USE
     Dosage: 100ML 8 TIMES/DAY
     Route: 041
     Dates: start: 20210129, end: 20210209

REACTIONS (3)
  - Muscular weakness [Recovering/Resolving]
  - Gait disturbance [Recovering/Resolving]
  - Tremor [Recovering/Resolving]

NARRATIVE: CASE EVENT DATE: 20210208
